FAERS Safety Report 9832266 (Version 1)
Quarter: 2014Q1

REPORT INFORMATION
  Report Type: Report from Study
  Country: CA (occurrence: CA)
  Receive Date: 20140121
  Receipt Date: 20140121
  Transmission Date: 20141002
  Serious: Yes (Other)
  Sender: FDA-Public Use
  Company Number: CA-BRISTOL-MYERS SQUIBB COMPANY-20035051

PATIENT
  Age: 70 Year
  Sex: Female

DRUGS (16)
  1. ORENCIA [Suspect]
     Indication: RHEUMATOID ARTHRITIS
     Dosage: 1DF: 750 UNIT:NOS
     Route: 042
     Dates: start: 20110221
  2. CARBOCAL [Concomitant]
  3. ACTONEL [Concomitant]
  4. CYCLOBENZAPRINE [Concomitant]
  5. CLONAZEPAM [Concomitant]
  6. ARAVA [Concomitant]
  7. COLCHICINE [Concomitant]
  8. SYNTHROID [Concomitant]
  9. PREVACID [Concomitant]
  10. CITALOPRAM [Concomitant]
  11. MICARDIS [Concomitant]
  12. PREDNISONE [Concomitant]
  13. SENNOSIDES [Concomitant]
  14. DOCUSATE [Concomitant]
  15. LYRICA [Concomitant]
  16. HYDROMORPHONE [Concomitant]

REACTIONS (1)
  - Spinal disorder [Recovering/Resolving]
